FAERS Safety Report 8413912-9 (Version None)
Quarter: 2012Q2

REPORT INFORMATION
  Report Type: 
  Country: None (occurrence: None)
  Receive Date: 20120605
  Receipt Date: 20120524
  Transmission Date: 20120825
  Serious: No
  Sender: FDA-Public Use
  Company Number: US-ASTRAZENECA-2011SE77130

PATIENT
  Age: 53 Year
  Sex: Male
  Weight: 77.1 kg

DRUGS (25)
  1. SEROQUEL XR [Suspect]
     Indication: DEPRESSION
     Route: 048
  2. SEROQUEL XR [Suspect]
     Route: 048
     Dates: start: 20110601
  3. SEROQUEL XR [Suspect]
     Indication: SLEEP DISORDER
     Route: 048
  4. SEROQUEL XR [Suspect]
     Route: 048
     Dates: start: 20110601
  5. SEROQUEL XR [Suspect]
     Route: 048
  6. VICODIN [Suspect]
     Route: 065
  7. ZOLOFT [Concomitant]
     Indication: DEPRESSION
  8. HYDROCODONE [Concomitant]
  9. DEMEROL [Suspect]
     Route: 065
  10. ALPRAZOLAM [Concomitant]
     Indication: ANXIETY
  11. ALPRAZOLAM [Concomitant]
     Indication: STRESS
  12. ALPRAZOLAM [Concomitant]
  13. SEROQUEL XR [Suspect]
     Indication: ANXIETY
     Route: 048
  14. SEROQUEL XR [Suspect]
     Indication: INSOMNIA
     Route: 048
  15. SEROQUEL XR [Suspect]
     Route: 048
  16. SEROQUEL XR [Suspect]
     Route: 048
  17. SEROQUEL XR [Suspect]
     Route: 048
  18. SEROQUEL XR [Suspect]
     Route: 048
  19. IBUPROFEN (ADVIL) [Concomitant]
  20. SEROQUEL XR [Suspect]
     Route: 048
  21. SEROQUEL XR [Suspect]
     Route: 048
  22. SEROQUEL XR [Suspect]
     Route: 048
     Dates: start: 20110601
  23. SEROQUEL XR [Suspect]
     Route: 048
     Dates: start: 20110601
  24. SEROQUEL XR [Suspect]
     Route: 048
  25. ALPRAZOLAM [Concomitant]

REACTIONS (14)
  - MOOD SWINGS [None]
  - ANXIETY [None]
  - ABDOMINAL DISCOMFORT [None]
  - STRESS [None]
  - BACK DISORDER [None]
  - INTENTIONAL DRUG MISUSE [None]
  - CONCUSSION [None]
  - CONSTIPATION [None]
  - DRUG PRESCRIBING ERROR [None]
  - OFF LABEL USE [None]
  - ROAD TRAFFIC ACCIDENT [None]
  - INJURY [None]
  - NAUSEA [None]
  - MUSCULOSKELETAL DISCOMFORT [None]
